FAERS Safety Report 16077259 (Version 3)
Quarter: 2019Q4

REPORT INFORMATION
  Report Type: Spontaneous
  Country: US (occurrence: US)
  Receive Date: 20190315
  Receipt Date: 20191212
  Transmission Date: 20200122
  Serious: Yes (Death, Hospitalization, Other)
  Sender: FDA-Public Use
  Company Number: US-ACADIA PHARMACEUTICALS INC.-ACA-2019-012150

PATIENT

DRUGS (2)
  1. PIMAVANSERIN [Suspect]
     Active Substance: PIMAVANSERIN
     Indication: PSYCHOTIC DISORDER
     Dosage: UNK
  2. QUETIAPINE. [Concomitant]
     Active Substance: QUETIAPINE
     Indication: PRODUCT USED FOR UNKNOWN INDICATION

REACTIONS (16)
  - Nonspecific reaction [Unknown]
  - Dizziness [Unknown]
  - Sedation [Unknown]
  - Constipation [Unknown]
  - Fall [Unknown]
  - Drug ineffective [Unknown]
  - Death [Fatal]
  - Nausea [Unknown]
  - Syncope [Unknown]
  - Psychotic disorder [Unknown]
  - Oedema [Unknown]
  - Hospitalisation [Unknown]
  - Insomnia [Unknown]
  - Orthostatic hypotension [Unknown]
  - Parkinson^s disease [Unknown]
  - Confusional state [Unknown]
